FAERS Safety Report 4504807-1 (Version None)
Quarter: 2004Q3

REPORT INFORMATION
  Report Type: 
  Country: None (occurrence: None)
  Receive Date: 20040927
  Receipt Date: 20040707
  Transmission Date: 20050211
  Serious: No
  Sender: FDA-Public Use
  Company Number: USA040772015

PATIENT
  Sex: Female

DRUGS (6)
  1. STRATTERA [Suspect]
     Indication: ATTENTION DEFICIT/HYPERACTIVITY DISORDER
     Dosage: 80 MG IN THE MORNING
     Dates: start: 20040601
  2. FLUTICASONE PROPIONATE W/SALMETEROL XINAFOATE [Concomitant]
  3. LEXAPRO [Concomitant]
  4. PAXIL [Concomitant]
  5. NEURONTIN [Concomitant]
  6. EFFEXOR [Concomitant]

REACTIONS (2)
  - DRY MOUTH [None]
  - DRY THROAT [None]
